FAERS Safety Report 9803001 (Version 1)
Quarter: 2014Q1

REPORT INFORMATION
  Report Type: Spontaneous
  Country: FR (occurrence: FR)
  Receive Date: 20140108
  Receipt Date: 20140108
  Transmission Date: 20141002
  Serious: Yes (Hospitalization)
  Sender: FDA-Public Use
  Company Number: FR-JNJFOC-20140100282

PATIENT
  Age: 71 Year
  Sex: Male

DRUGS (12)
  1. ZYTIGA [Suspect]
     Indication: PROSTATE CANCER
     Dosage: 250 MG
     Route: 048
     Dates: start: 2012, end: 20131219
  2. KARDEGIC [Concomitant]
     Route: 065
  3. CRESTOR [Concomitant]
     Route: 065
  4. PERINDOPRIL [Concomitant]
     Route: 065
  5. NEXIUM [Concomitant]
     Route: 065
  6. TOPALGIC [Concomitant]
     Route: 065
  7. CORTANCYL [Concomitant]
     Route: 065
  8. ALDACTONE [Concomitant]
     Route: 065
  9. SPECIAFOLDINE [Concomitant]
     Route: 065
  10. TARDYFERON [Concomitant]
     Route: 065
  11. STILNOX [Concomitant]
     Route: 065
  12. KALEORID [Concomitant]
     Route: 065

REACTIONS (3)
  - Hypokalaemia [Not Recovered/Not Resolved]
  - Endocarditis [Unknown]
  - Atrial fibrillation [Unknown]
